FAERS Safety Report 8878932 (Version 1)
Quarter: 2012Q4

REPORT INFORMATION
  Report Type: Report from Study
  Country: US (occurrence: US)
  Receive Date: 20121026
  Receipt Date: 20121026
  Transmission Date: 20130627
  Serious: Yes (Other)
  Sender: FDA-Public Use
  Company Number: US-US-EMD SERONO, INC.-7169043

PATIENT
  Sex: Female

DRUGS (3)
  1. REBIF [Suspect]
     Indication: PRODUCT USED FOR UNKNOWN INDICATION
     Route: 058
     Dates: start: 20120731, end: 201209
  2. REBIF [Suspect]
     Route: 058
     Dates: start: 201209
  3. NAPROXEN [Concomitant]
     Indication: BACK PAIN

REACTIONS (2)
  - West Nile viral infection [Recovered/Resolved]
  - Weight increased [Unknown]
